FAERS Safety Report 5524374-3 (Version None)
Quarter: 2007Q4

REPORT INFORMATION
  Report Type: 
  Country: None (occurrence: None)
  Receive Date: 20071121
  Receipt Date: 20071113
  Transmission Date: 20080405
  Serious: Yes (Other)
  Sender: FDA-Public Use
  Company Number: US-PFIZER INC-2007096116

PATIENT
  Sex: Female

DRUGS (1)
  1. GABAPENTIN [Suspect]
     Indication: PAIN

REACTIONS (4)
  - BALANCE DISORDER [None]
  - DRUG INEFFECTIVE [None]
  - JOINT DISLOCATION [None]
  - LOSS OF CONSCIOUSNESS [None]
